FAERS Safety Report 8334482-X (Version None)
Quarter: 2012Q2

REPORT INFORMATION
  Report Type: 
  Country: None (occurrence: None)
  Receive Date: 20120503
  Receipt Date: 20110420
  Transmission Date: 20120825
  Serious: No
  Sender: FDA-Public Use
  Company Number: US-TEVA-2011001404

PATIENT
  Age: 33 Year
  Sex: Male
  Weight: 69 kg

DRUGS (2)
  1. FLUOXETINE [Concomitant]
     Indication: CATAPLEXY
  2. NUVIGIL [Suspect]
     Indication: NARCOLEPSY
     Dosage: 250 MILLIGRAM;
     Route: 048

REACTIONS (1)
  - DEPRESSION [None]
